FAERS Safety Report 9478269 (Version 2)
Quarter: 2013Q3

REPORT INFORMATION
  Report Type: Report from Study
  Country: CA (occurrence: CA)
  Receive Date: 20130827
  Receipt Date: 20130902
  Transmission Date: 20140515
  Serious: No
  Sender: FDA-Public Use
  Company Number: CA-JNJFOC-20130809071

PATIENT
  Age: 53 Year
  Sex: Female
  Weight: 82.37 kg

DRUGS (1)
  1. STELARA [Suspect]
     Indication: PSORIASIS
     Route: 058
     Dates: start: 201208

REACTIONS (1)
  - Vitiligo [Not Recovered/Not Resolved]
